FAERS Safety Report 4680064-0 (Version None)
Quarter: 2005Q2

REPORT INFORMATION
  Report Type: 
  Country: None (occurrence: None)
  Receive Date: 20050531
  Receipt Date: 20050517
  Transmission Date: 20051028
  Serious: Yes (Other)
  Sender: FDA-Public Use
  Company Number: 2005076589

PATIENT
  Age: 93 Year
  Sex: Female

DRUGS (6)
  1. CELEBREX [Suspect]
     Indication: OSTEOARTHRITIS
     Dosage: 200 MG (200 MG, 1 IN 1 D), ORAL
     Route: 048
     Dates: start: 20050428, end: 20050511
  2. FUROSEMIDE [Concomitant]
  3. SPIRONOLCTON (SPIRONOLACTONE) [Concomitant]
  4. LISINOPRIL [Concomitant]
  5. ACETAMINOPHEN [Concomitant]
  6. ALL OTHER THERAPETUTIC  PRODUCTS (ALL OTHER THERAPETUTIC PROUDCTS) [Concomitant]

REACTIONS (6)
  - ORAL INTAKE REDUCED [None]
  - PRURITUS [None]
  - RASH MACULAR [None]
  - SKIN REACTION [None]
  - STOMATITIS [None]
  - SWELLING FACE [None]
